FAERS Safety Report 7353360-6 (Version None)
Quarter: 2011Q1

REPORT INFORMATION
  Report Type: 
  Country: None (occurrence: None)
  Receive Date: 20110315
  Receipt Date: 20110310
  Transmission Date: 20110831
  Serious: Yes (Hospitalization)
  Sender: FDA-Public Use
  Company Number: FR-PFIZER INC-2011052760

PATIENT
  Age: 53 Year
  Sex: Female

DRUGS (10)
  1. LASIX [Concomitant]
     Dosage: 40 MG, UNK
     Route: 048
  2. EPIVIR [Concomitant]
     Dosage: 150 MG, UNK
     Route: 048
  3. REYATAZ [Concomitant]
  4. SOLIAN [Concomitant]
  5. TERCIAN [Concomitant]
     Dosage: 100 MG, UNK
     Route: 048
  6. AMLOR [Suspect]
     Dosage: 10 MG, 1X/DAY
     Route: 048
  7. AVLOCARDYL [Suspect]
     Route: 048
  8. NORVIR [Suspect]
  9. ATARAX [Concomitant]
     Dosage: 100 MG, UNK
     Route: 048
  10. ISENTRESS [Concomitant]
     Dosage: 400 MG, UNK
     Route: 048

REACTIONS (3)
  - BRADYCARDIA [None]
  - HYPOTENSION [None]
  - CARDIOGENIC SHOCK [None]
